FAERS Safety Report 6772727-8 (Version None)
Quarter: 2010Q2

REPORT INFORMATION
  Report Type: 
  Country: None (occurrence: None)
  Receive Date: 20100614
  Receipt Date: 20100528
  Transmission Date: 20101027
  Serious: Yes (Hospitalization)
  Sender: FDA-Public Use
  Company Number: BCN-AS-2010-RR-097

PATIENT
  Age: 11 Year
  Sex: Female

DRUGS (1)
  1. AMOXICILLIN [Suspect]
     Indication: TONSILLITIS
     Dosage: 0.9 GRAM(S) DAILY

REACTIONS (3)
  - ENTEROCOLITIS HAEMORRHAGIC [None]
  - FLATULENCE [None]
  - KLEBSIELLA INFECTION [None]
